FAERS Safety Report 14341311 (Version 1)
Quarter: 2018Q1

REPORT INFORMATION
  Report Type: Report from Study
  Country: None (occurrence: CA)
  Receive Date: 20180102
  Receipt Date: 20180102
  Transmission Date: 20180509
  Serious: Yes (Hospitalization, Other)
  Sender: FDA-Public Use
  Company Number: CA-ABBVIE-17K-028-2203623-00

PATIENT
  Age: 37 Year
  Sex: Female
  Weight: 70 kg

DRUGS (1)
  1. HUMIRA [Suspect]
     Active Substance: ADALIMUMAB
     Indication: CROHN^S DISEASE
     Route: 058
     Dates: start: 20141022, end: 201711

REACTIONS (5)
  - Anal abscess [Unknown]
  - Drug effect decreased [Not Recovered/Not Resolved]
  - Fistula [Unknown]
  - Crohn^s disease [Recovering/Resolving]
  - Anal fistula [Unknown]

NARRATIVE: CASE EVENT DATE: 2017
